FAERS Safety Report 6094481-8 (Version None)
Quarter: 2009Q1

REPORT INFORMATION
  Report Type: 
  Country: None (occurrence: None)
  Receive Date: 20090226
  Receipt Date: 20090224
  Transmission Date: 20090719
  Serious: Yes (Hospitalization)
  Sender: FDA-Public Use
  Company Number: US-ASTRAZENECA-2009UW05132

PATIENT
  Sex: Female
  Weight: 72.6 kg

DRUGS (10)
  1. SYMBICORT [Suspect]
     Indication: CHRONIC OBSTRUCTIVE PULMONARY DISEASE
     Dosage: 160/4.5 UG  - 2 PUFFS BID
     Route: 055
     Dates: start: 20090112
  2. SYMBICORT [Suspect]
     Indication: ASTHMA
     Dosage: 160/4.5 UG  - 2 PUFFS BID
     Route: 055
     Dates: start: 20090112
  3. ALBUTEROL [Concomitant]
  4. ATROVENT [Concomitant]
  5. LEVOTHYROXINE SODIUM [Concomitant]
  6. KLOR-CON [Concomitant]
  7. FUROSEMIDE [Concomitant]
  8. ASPIRIN [Concomitant]
  9. CALCIUM WITH D [Concomitant]
  10. THEOPHYLLINE [Concomitant]

REACTIONS (3)
  - CHEST DISCOMFORT [None]
  - RESPIRATORY TRACT INFECTION [None]
  - RESPIRATORY TRACT IRRITATION [None]
